FAERS Safety Report 5872417-X (Version None)
Quarter: 2008Q3

REPORT INFORMATION
  Report Type: 
  Country: None (occurrence: None)
  Receive Date: 20080905
  Receipt Date: 20080902
  Transmission Date: 20090109
  Serious: Yes (Hospitalization)
  Sender: FDA-Public Use
  Company Number: AU-ASTRAZENECA-2008AP06423

PATIENT
  Age: 78 Year
  Sex: Female
  Weight: 50 kg

DRUGS (14)
  1. CRESTOR [Suspect]
     Indication: CORONARY ARTERY DISEASE
     Route: 048
     Dates: start: 20080617, end: 20080813
  2. CRESTOR [Suspect]
     Indication: BLOOD CHOLESTEROL INCREASED
     Route: 048
     Dates: start: 20080617, end: 20080813
  3. WARFARIN SODIUM [Suspect]
     Indication: SURGERY
  4. ATACAND [Concomitant]
  5. EZETROL [Concomitant]
  6. FOSAMAX [Concomitant]
  7. LASIX [Concomitant]
  8. ENDEP [Concomitant]
  9. VITAMIN D [Concomitant]
  10. PANAMAX [Concomitant]
  11. PLAVIX [Concomitant]
  12. DIAZEPAM [Concomitant]
  13. PROCHLORPERAZINE [Concomitant]
  14. LAMISIL [Concomitant]

REACTIONS (3)
  - BLOOD CREATINE PHOSPHOKINASE INCREASED [None]
  - CONTUSION [None]
  - PAIN IN EXTREMITY [None]
